FAERS Safety Report 9229648 (Version 1)
Quarter: 2013Q2

REPORT INFORMATION
  Report Type: Spontaneous
  Country: US (occurrence: US)
  Receive Date: 20130415
  Receipt Date: 20130415
  Transmission Date: 20140414
  Serious: No
  Sender: FDA-Public Use
  Company Number: US-009507513-1304USA003650

PATIENT
  Age: 83 Year
  Sex: Female

DRUGS (2)
  1. DULERA [Suspect]
     Indication: SEASONAL ALLERGY
     Dosage: STRENGTH 200/5 MCG
     Route: 055
     Dates: start: 201211, end: 201301
  2. DULERA [Suspect]
     Indication: SEASONAL ALLERGY
     Dosage: STRENGTH 100/5MCG
     Route: 055
     Dates: start: 201301, end: 201301

REACTIONS (2)
  - Fatigue [Recovered/Resolved]
  - Asthenia [Recovered/Resolved]
